FAERS Safety Report 8229048-6 (Version None)
Quarter: 2012Q1

REPORT INFORMATION
  Report Type: 
  Country: None (occurrence: None)
  Receive Date: 20120322
  Receipt Date: 20120316
  Transmission Date: 20120608
  Serious: Yes (Death, Other)
  Sender: FDA-Public Use
  Company Number: US-BAYER-200940554NA

PATIENT
  Age: 78 Year
  Sex: Male
  Weight: 77.098 kg

DRUGS (55)
  1. IBUPROFEN (ADVIL) [Concomitant]
     Dosage: UNK UNK, PRN
  2. OXYBUTYNIN [Concomitant]
     Dosage: 5 MG, TID
     Route: 048
  3. HEPARIN [Concomitant]
     Dosage: 10,000 UNITS
     Route: 042
     Dates: start: 20060531
  4. BUMEX [Concomitant]
     Dosage: 1 G, UNK
     Route: 042
     Dates: start: 20060531
  5. CONTRAST MEDIA [Concomitant]
     Indication: CATHETERISATION CARDIAC
     Dosage: UNK
     Dates: start: 20060526
  6. MEGESTROL ACETATE [Concomitant]
     Dosage: DAILY DOSE 20 MG
     Route: 048
  7. AMICAR [Concomitant]
     Indication: CORONARY ARTERY BYPASS
     Dosage: 10 G, UNK
     Dates: start: 20060527, end: 20060527
  8. METOPROLOL SUCCINATE [Concomitant]
     Dosage: 25 MG, QD
     Route: 048
  9. PROZAC [Concomitant]
     Dosage: 10 MG, QD
     Route: 048
  10. LODINE [Concomitant]
     Dosage: 300 MG, QD
     Route: 048
  11. LASIX [Concomitant]
     Dosage: 40 MG, UNK
     Route: 042
     Dates: start: 20060531
  12. VECURONIUM BROMIDE [Concomitant]
     Dosage: 10 MG, UNK
     Route: 042
     Dates: start: 20060531
  13. DEMEROL [Concomitant]
     Dosage: UNK
     Route: 042
     Dates: start: 20060527
  14. FOLIC ACID [Concomitant]
     Dosage: 1 MG, QD
     Route: 048
  15. TRASYLOL [Suspect]
     Indication: THROMBOEMBOLECTOMY
     Dosage: 200 ML CARDIOPULMONARY BYPASS PRIME
     Route: 042
     Dates: start: 20060531, end: 20060531
  16. TRASYLOL [Suspect]
     Dosage: 200 ML, LOADING DOSE
     Route: 042
     Dates: start: 20060531, end: 20060531
  17. SIMVASTATIN [Concomitant]
     Dosage: DAILY DOSE 80 MG
     Route: 048
  18. FLUOXETINE [Concomitant]
     Dosage: 10 MG, QD
     Route: 048
  19. ETODOLAC [Concomitant]
     Dosage: 300 MG, BID
     Route: 048
  20. ANCEF [Concomitant]
     Dosage: 1 G, UNK
     Route: 042
     Dates: start: 20060531
  21. AMIODARONE HYDROCHLORIDE [Concomitant]
     Dosage: TITRATED
     Route: 042
     Dates: start: 20060531
  22. RED BLOOD CELLS [Concomitant]
     Dosage: 2 U
     Route: 042
     Dates: start: 20060527
  23. PLATELETS [Concomitant]
     Dosage: 2 U, UNK
     Route: 042
     Dates: start: 20060531
  24. DECADRON [Concomitant]
     Dosage: 16 MG, UNK
     Route: 042
     Dates: start: 20060531
  25. VASOPRESSIN [Concomitant]
     Dosage: TITRATED
     Route: 042
     Dates: start: 20060531
  26. RED BLOOD CELLS [Concomitant]
     Dosage: 3 U, UNK
     Route: 042
     Dates: start: 20060531
  27. NAPROXEN [Concomitant]
     Dosage: 250 MG, BID
     Route: 048
  28. PEPCID [Concomitant]
     Dosage: 20 MG, UNK
     Route: 042
     Dates: start: 20060531
  29. HEPARIN [Concomitant]
     Dosage: 37000 U, UNK
     Route: 042
     Dates: start: 20060531
  30. ALBUMIN (HUMAN) [Concomitant]
     Dosage: 200 ML, UNK
     Dates: start: 20060531
  31. NAPROXEN (ALEVE) [Concomitant]
     Dosage: UNK UNK, PRN
  32. LEXAPRO [Concomitant]
     Dosage: 10 MG, QD
     Route: 048
  33. PROTONIX [Concomitant]
     Dosage: 40 MG, QD
     Route: 048
  34. ZOCOR [Concomitant]
     Dosage: 40 MG, QD
     Route: 048
  35. RANITIDINE [Concomitant]
     Dosage: 150 MG, BID
     Route: 048
  36. COREG [Concomitant]
     Dosage: 12.5 MG, BID
     Route: 048
  37. PRIMACOR [Concomitant]
     Dosage: TITRATED
     Route: 042
     Dates: start: 20060531
  38. PROTAMINE SULFATE [Concomitant]
     Dosage: 300 MG, UNK
     Route: 042
     Dates: start: 20060531
  39. TRIDIL [Concomitant]
     Dosage: UNK
     Route: 042
     Dates: start: 20060527
  40. VERSED [Concomitant]
     Dosage: UNK
     Route: 042
     Dates: start: 20060527
  41. COZAAR [Concomitant]
     Dosage: 50 MG, QD
     Route: 048
  42. ATENOLOL [Concomitant]
     Dosage: DAILY DOSE 50 MG
     Route: 048
  43. IMDUR [Concomitant]
     Dosage: 30 MG, QD
     Route: 048
  44. ZESTRIL [Concomitant]
     Dosage: 20 MG, QD
     Route: 048
  45. INDOCIN [Concomitant]
     Dosage: DAILY DOSE 75 MG
     Route: 048
  46. PLAVIX [Concomitant]
     Dosage: 75 MG, QD
     Route: 048
  47. VANCOMYCIN [Concomitant]
     Dosage: 1 G, UNK
     Route: 042
     Dates: start: 20060531
  48. HEPARIN [Concomitant]
     Dosage: UNK
     Route: 042
     Dates: start: 20060527
  49. ASPIRIN [Concomitant]
     Dosage: 81 MG, QD
     Route: 048
  50. GALANTAMINE HYDROBROMIDE [Concomitant]
     Dosage: 4 MG, BID
     Route: 048
  51. EPINEPHRINE [Concomitant]
     Dosage: TITRATED
     Route: 042
     Dates: start: 20060531
  52. FRESH FROZEN PLASMA [Concomitant]
     Dosage: 4 U, UNK
     Route: 042
     Dates: start: 20060531
  53. KENALOG [Concomitant]
     Dosage: PERIODICALLY
     Dates: start: 20050908
  54. TRIAMCINOLONE [Concomitant]
     Dosage: PERIODICALLY
     Route: 061
     Dates: start: 20040108
  55. VISIPAQUE [Concomitant]
     Indication: CATHETERISATION CARDIAC
     Dosage: 54 ML, UNK
     Dates: start: 20060527, end: 20060527

REACTIONS (13)
  - INJURY [None]
  - DEATH [None]
  - ANHEDONIA [None]
  - MULTI-ORGAN FAILURE [None]
  - RENAL IMPAIRMENT [None]
  - RENAL INJURY [None]
  - RENAL FAILURE [None]
  - STRESS [None]
  - ANXIETY [None]
  - FEAR [None]
  - EMOTIONAL DISTRESS [None]
  - UNEVALUABLE EVENT [None]
  - PAIN [None]
